FAERS Safety Report 9929485 (Version 2)
Quarter: 2014Q1

REPORT INFORMATION
  Report Type: Spontaneous
  Country: AR (occurrence: AR)
  Receive Date: 20140227
  Receipt Date: 20140303
  Transmission Date: 20141002
  Serious: Yes (Other)
  Sender: FDA-Public Use
  Company Number: AR-GLAXOSMITHKLINE-A1062740A

PATIENT
  Sex: Male
  Weight: 60 kg

DRUGS (1)
  1. PAZOPANIB [Suspect]
     Indication: RENAL CANCER
     Route: 048
     Dates: start: 201311, end: 201312

REACTIONS (5)
  - Lower gastrointestinal haemorrhage [Recovering/Resolving]
  - Dizziness [Recovering/Resolving]
  - Nausea [Recovering/Resolving]
  - Bradycardia [Recovered/Resolved]
  - Drug intolerance [Unknown]
